FAERS Safety Report 7266572-7 (Version None)
Quarter: 2011Q1

REPORT INFORMATION
  Report Type: 
  Country: None (occurrence: None)
  Receive Date: 20110131
  Receipt Date: 20110121
  Transmission Date: 20110831
  Serious: Yes (Hospitalization, Other)
  Sender: FDA-Public Use
  Company Number: US-GENENTECH-310603

PATIENT
  Sex: Male
  Weight: 51 kg

DRUGS (3)
  1. GUMMY VITAMINS NOS [Concomitant]
     Indication: PRODUCT USED FOR UNKNOWN INDICATION
     Dosage: 2 TABLET, QD
  2. NUTROPIN AQ [Suspect]
     Indication: GROWTH RETARDATION
     Dosage: 2.4 MG, 6/WEEK
     Route: 058
     Dates: start: 20100926, end: 20101105
  3. CLARITIN [Concomitant]
     Indication: HYPERSENSITIVITY
     Dosage: 10 MG, QD
     Route: 048

REACTIONS (2)
  - SINUSITIS [None]
  - OBSESSIVE-COMPULSIVE DISORDER [None]
